FAERS Safety Report 5176742-X (Version None)
Quarter: 2006Q4

REPORT INFORMATION
  Report Type: 
  Country: None (occurrence: None)
  Receive Date: 20061218
  Receipt Date: 20061212
  Transmission Date: 20070319
  Serious: Yes (Life-Threatening, Hospitalization)
  Sender: FDA-Public Use
  Company Number: ES-BAYER-200616323GDS

PATIENT
  Age: 47 Year
  Sex: Male

DRUGS (20)
  1. NIFEDIPINE [Suspect]
     Indication: HYPERTENSION
     Dosage: TOTAL DAILY DOSE: 60 MG
     Route: 065
     Dates: end: 20050301
  2. NIFEDIPINE [Interacting]
     Dosage: TOTAL DAILY DOSE: 60 MG
     Route: 065
     Dates: start: 20050501, end: 20050501
  3. NIFEDIPINE [Interacting]
     Dosage: TOTAL DAILY DOSE: 60 MG
     Route: 065
     Dates: start: 20050101, end: 20050101
  4. KALETRA [Interacting]
     Indication: ACQUIRED IMMUNODEFICIENCY SYNDROME
     Route: 065
     Dates: start: 20050101
  5. KALETRA [Interacting]
     Route: 065
     Dates: start: 20020101, end: 20050301
  6. KALETRA [Interacting]
     Route: 065
     Dates: start: 20050101, end: 20050101
  7. KALETRA [Interacting]
     Route: 065
     Dates: start: 20050501, end: 20050501
  8. LAMIVUDINE [Concomitant]
     Indication: ACQUIRED IMMUNODEFICIENCY SYNDROME
     Route: 065
     Dates: start: 20050101
  9. LAMIVUDINE [Concomitant]
     Route: 065
     Dates: start: 20050501, end: 20050501
  10. LAMIVUDINE [Concomitant]
     Route: 065
     Dates: start: 20020101, end: 20050301
  11. D4T [Concomitant]
     Indication: ACQUIRED IMMUNODEFICIENCY SYNDROME
     Route: 065
     Dates: start: 20050101
  12. D4T [Concomitant]
     Route: 065
     Dates: start: 20050501, end: 20050501
  13. D4T [Concomitant]
     Route: 065
     Dates: start: 20020101, end: 20050301
  14. DOXAZOSIN MESYLATE [Concomitant]
     Indication: HYPERTENSION
     Dosage: TOTAL DAILY DOSE: 2 MG
     Route: 065
     Dates: start: 20050501, end: 20050501
  15. DOXAZOSIN MESYLATE [Concomitant]
     Dosage: TOTAL DAILY DOSE: 2 MG
     Route: 065
     Dates: end: 20050301
  16. FUROSEMIDE [Concomitant]
     Indication: HYPERTENSION
     Dosage: TOTAL DAILY DOSE: 120 MG
     Route: 065
     Dates: start: 20050501, end: 20050501
  17. FUROSEMIDE [Concomitant]
     Dosage: TOTAL DAILY DOSE: 120 MG
     Route: 065
     Dates: end: 20050301
  18. ENALAPRIL MALEATE [Concomitant]
     Indication: HYPERTENSION
     Dosage: TOTAL DAILY DOSE: 10 MG
     Route: 065
     Dates: start: 20050101, end: 20050101
  19. LOSARTAN POTASSIUM [Concomitant]
     Indication: HYPERTENSION
     Dosage: TOTAL DAILY DOSE: 10 MG
     Route: 065
     Dates: start: 20050101, end: 20050101
  20. AMLODIPINE [Concomitant]
     Indication: HYPERTENSION
     Route: 065
     Dates: start: 20050101

REACTIONS (6)
  - BLOOD CREATININE INCREASED [None]
  - FLUID RETENTION [None]
  - HYPOTENSION [None]
  - MALAISE [None]
  - RENAL FAILURE [None]
  - URINE OUTPUT DECREASED [None]
